FAERS Safety Report 10524262 (Version 1)
Quarter: 2014Q4

REPORT INFORMATION
  Report Type: Report from Study
  Country: US (occurrence: US)
  Receive Date: 20141017
  Receipt Date: 20141017
  Transmission Date: 20150528
  Serious: Yes (Other)
  Sender: FDA-Public Use
  Company Number: US-SA-2014SA140511

PATIENT
  Age: 57 Year
  Sex: Male

DRUGS (1)
  1. LANTUS [Suspect]
     Active Substance: INSULIN GLARGINE
     Indication: TYPE 2 DIABETES MELLITUS
     Dosage: HE TAKES 30 IN THE MORNING AND 30 IN THE NIGHT TIME, VIALS
     Dates: start: 2014

REACTIONS (2)
  - Drug administration error [Unknown]
  - Myocardial infarction [Unknown]
